FAERS Safety Report 7586488-6 (Version None)
Quarter: 2011Q3

REPORT INFORMATION
  Report Type: 
  Country: None (occurrence: None)
  Receive Date: 20110701
  Receipt Date: 20110620
  Transmission Date: 20111222
  Serious: Yes (Hospitalization)
  Sender: FDA-Public Use
  Company Number: US-ROCHE-702910

PATIENT
  Sex: Female

DRUGS (14)
  1. METOPROLOL TARTRATE [Concomitant]
     Dates: start: 20071215
  2. MYCOPHENOLATE MEFETIL [Suspect]
     Dosage: INTERRUPTED
     Route: 048
     Dates: start: 20070120
  3. NEORAL [Suspect]
     Route: 048
     Dates: start: 20070120
  4. HYDROCODONE [Concomitant]
     Dates: start: 20080424
  5. PEPCID [Concomitant]
     Dates: start: 20080206
  6. XANAX [Concomitant]
     Dates: start: 20070501
  7. PREDNISONE [Suspect]
     Route: 048
     Dates: start: 20070326
  8. NITROGLYCERIN [Concomitant]
  9. COLACE [Concomitant]
     Dates: start: 20070123
  10. LISINOPRIL [Concomitant]
     Dates: start: 20081124
  11. PAMELOR [Concomitant]
     Dates: start: 20091211
  12. OXYCONTIN [Concomitant]
     Dates: start: 20091211
  13. NEURONTIN [Concomitant]
     Dates: start: 20091211
  14. PRAVASTATIN [Concomitant]
     Dates: start: 20081225

REACTIONS (3)
  - URINARY TRACT INFECTION [None]
  - TRANSPLANT REJECTION [None]
  - CHEST PAIN [None]
